FAERS Safety Report 18935554 (Version 3)
Quarter: 2022Q1

REPORT INFORMATION
  Report Type: Spontaneous
  Country: IE (occurrence: IE)
  Receive Date: 20210224
  Receipt Date: 20220120
  Transmission Date: 20220423
  Serious: Yes (Other)
  Sender: FDA-Public Use
  Company Number: IE-BAXTER-2021BAX003656

PATIENT
  Age: 5 Year
  Sex: Male

DRUGS (8)
  1. DOXORUBICIN HYDROCHLORIDE [Suspect]
     Active Substance: DOXORUBICIN HYDROCHLORIDE
     Indication: B precursor type acute leukaemia
     Dosage: UKALL 2011 PROTOCOL REGIMEN A
     Route: 065
     Dates: start: 2013, end: 2016
  2. CYCLOPHOSPHAMIDE [Suspect]
     Active Substance: CYCLOPHOSPHAMIDE
     Indication: B precursor type acute leukaemia
     Dosage: UKALL 2011 PROTOCOL REGIMEN A
     Route: 065
     Dates: start: 2013, end: 2016
  3. DEXAMETHASONE [Suspect]
     Active Substance: DEXAMETHASONE
     Indication: B precursor type acute leukaemia
     Dosage: UKALL 2011 PROTOCOL REGIMEN A
     Route: 065
     Dates: start: 2013, end: 2016
  4. PEGASPARGASE [Suspect]
     Active Substance: PEGASPARGASE
     Indication: B precursor type acute leukaemia
     Dosage: UKALL 2011 PROTOCOL REGIMEN A
     Route: 065
     Dates: start: 2013, end: 2016
  5. METHOTREXATE [Suspect]
     Active Substance: METHOTREXATE
     Indication: B precursor type acute leukaemia
     Dosage: UKALL 2011 PROTOCOL REGIMEN A
     Route: 065
     Dates: start: 2013, end: 2016
  6. MERCAPTOPURINE [Suspect]
     Active Substance: MERCAPTOPURINE
     Indication: B precursor type acute leukaemia
     Dosage: UKALL 2011 PROTOCOL REGIMEN A
     Route: 065
     Dates: start: 2013, end: 2016
  7. CYTARABINE [Suspect]
     Active Substance: CYTARABINE
     Indication: B precursor type acute leukaemia
     Dosage: UKALL 2011 PROTOCOL REGIMEN A
     Route: 065
     Dates: start: 2013, end: 2016
  8. VINCRISTINE [Suspect]
     Active Substance: VINCRISTINE
     Indication: B precursor type acute leukaemia
     Dosage: UKALL 2011 PROTOCOL REGIMEN A
     Route: 065
     Dates: start: 2013, end: 2016

REACTIONS (1)
  - Multiple lentigines syndrome [Unknown]

NARRATIVE: CASE EVENT DATE: 20160101
